FAERS Safety Report 16373472 (Version 1)
Quarter: 2019Q2

REPORT INFORMATION
  Report Type: Spontaneous
  Country: US (occurrence: US)
  Receive Date: 20190530
  Receipt Date: 20190530
  Transmission Date: 20190711
  Serious: No
  Sender: FDA-Public Use
  Company Number: US-SA-2019SA144730

PATIENT

DRUGS (2)
  1. THYMOGLOBULIN [Suspect]
     Active Substance: LAPINE T-LYMPHOCYTE IMMUNE GLOBULIN
  2. RAPAMUNE [Concomitant]
     Active Substance: SIROLIMUS
     Dosage: 1 DF, QD

REACTIONS (1)
  - Drug hypersensitivity [Unknown]
